FAERS Safety Report 12990445 (Version 1)
Quarter: 2016Q4

REPORT INFORMATION
  Report Type: Spontaneous
  Country: US (occurrence: US)
  Receive Date: 20161201
  Receipt Date: 20161201
  Transmission Date: 20170207
  Serious: Yes (Other)
  Sender: FDA-Public Use
  Company Number: US-ROCHE-1857621

PATIENT
  Age: 28 Year
  Sex: Female

DRUGS (4)
  1. COTELLIC [Suspect]
     Active Substance: COBIMETINIB
     Dosage: FULL DOSE
     Route: 065
     Dates: start: 20160613
  2. COTELLIC [Suspect]
     Active Substance: COBIMETINIB
     Indication: PRODUCT USED FOR UNKNOWN INDICATION
     Route: 065
     Dates: start: 20160526
  3. ZELBORAF [Suspect]
     Active Substance: VEMURAFENIB
     Indication: PRODUCT USED FOR UNKNOWN INDICATION
     Route: 065
     Dates: start: 20160526
  4. ZELBORAF [Suspect]
     Active Substance: VEMURAFENIB
     Dosage: REDUCED DOSE
     Route: 065
     Dates: start: 20160613

REACTIONS (12)
  - Blood lactate dehydrogenase increased [Unknown]
  - Liver function test increased [Recovered/Resolved]
  - Metastases to central nervous system [Unknown]
  - Hepatic lesion [Unknown]
  - Fatigue [Unknown]
  - Photosensitivity reaction [Unknown]
  - Bone lesion [Unknown]
  - Pain [Unknown]
  - Rash [Recovered/Resolved]
  - Diarrhoea [Unknown]
  - Pyrexia [Unknown]
  - Chills [Unknown]

NARRATIVE: CASE EVENT DATE: 201607
